FAERS Safety Report 23176191 (Version 4)
Quarter: 2023Q4

REPORT INFORMATION
  Report Type: Spontaneous
  Country: US (occurrence: US)
  Receive Date: 20231113
  Receipt Date: 20231228
  Transmission Date: 20240109
  Serious: Yes (Hospitalization, Other)
  Sender: FDA-Public Use
  Company Number: US-BRISTOL-MYERS SQUIBB COMPANY-2023-159525

PATIENT
  Age: 86 Year
  Sex: Female

DRUGS (2)
  1. LENALIDOMIDE [Suspect]
     Active Substance: LENALIDOMIDE
     Indication: Myelodysplastic syndrome
     Dosage: TAKE 1CAPSULE BY MOUTH EVERY MORNING -SWALLOW WHOLE DO NOT BREAK, CHEW, OR OPEN CAPSULE
     Route: 048
     Dates: start: 20231023
  2. LENALIDOMIDE [Suspect]
     Active Substance: LENALIDOMIDE
     Dosage: TAKE 1 CAPSULE BY MOUTH EVERY MORNING -SWALLOW WHOLE DO NOT BREAK, CHEW, OR OPEN CAPSULE
     Route: 048

REACTIONS (1)
  - Laboratory test abnormal [Recovering/Resolving]
